FAERS Safety Report 25625723 (Version 1)
Quarter: 2025Q3

REPORT INFORMATION
  Report Type: Other
  Country: CN (occurrence: CN)
  Receive Date: 20250731
  Receipt Date: 20250731
  Transmission Date: 20251021
  Serious: Yes (Other)
  Sender: ANI
  Company Number: CN-ANIPHARMA-023888

PATIENT
  Age: 75 Year
  Sex: Female

DRUGS (2)
  1. FLUCONAZOLE [Suspect]
     Active Substance: FLUCONAZOLE
     Indication: Pneumonia cryptococcal
     Dates: start: 2024
  2. ABEMACICLIB [Concomitant]
     Active Substance: ABEMACICLIB
     Indication: Breast cancer
     Dates: start: 202306, end: 2024

REACTIONS (2)
  - Interstitial lung disease [Recovering/Resolving]
  - Drug interaction [Unknown]
